FAERS Safety Report 9416588 (Version 2)
Quarter: 2013Q3

REPORT INFORMATION
  Report Type: Spontaneous
  Country: IT (occurrence: IT)
  Receive Date: 20130719
  Receipt Date: 20130910
  Transmission Date: 20140515
  Serious: Yes (Hospitalization)
  Sender: FDA-Public Use
  Company Number: IT-012301

PATIENT
  Age: 50 Year
  Sex: Male

DRUGS (8)
  1. SOMATROPIN [Suspect]
     Indication: BLOOD GROWTH HORMONE DECREASED
     Route: 058
     Dates: start: 20020101, end: 20130410
  2. TESTOSTERONE ENANTHATE [Suspect]
     Indication: SECONDARY HYPOGONADISM
     Route: 030
     Dates: start: 20010201, end: 20130307
  3. LEVOTHYROXINE SODIUM [Concomitant]
  4. SIMVASTATIN [Concomitant]
  5. CHOLECALCIFEROL [Concomitant]
  6. CALCIUM CARBONATE [Concomitant]
  7. CORTONE ACETATO [Concomitant]
  8. SUSTANON [Suspect]
     Indication: SECONDARY HYPOGONADISM
     Dosage: DAILY DOSE = 250 MG (CYCLIC))
     Dates: start: 20010101, end: 20120202

REACTIONS (2)
  - Prostate cancer [None]
  - Hypochromic anaemia [None]
